FAERS Safety Report 8584427-2 (Version None)
Quarter: 2012Q3

REPORT INFORMATION
  Report Type: 
  Country: None (occurrence: None)
  Receive Date: 20120810
  Receipt Date: 20120516
  Transmission Date: 20120928
  Serious: Yes (Hospitalization)
  Sender: FDA-Public Use
  Company Number: FR-009507513-2012SP026749

PATIENT
  Age: 41 Year
  Sex: Female

DRUGS (4)
  1. VITAMIN D [Concomitant]
     Indication: PRODUCT USED FOR UNKNOWN INDICATION
     Dosage: 1 DF EVERY 3 MONTHS
     Route: 048
  2. LEVOTHYROXINE SODIUM [Concomitant]
     Indication: PRODUCT USED FOR UNKNOWN INDICATION
     Dosage: 100 ?G, QD
     Route: 048
  3. GESTODENE AND ETHINYL ESTRADIOL [Concomitant]
     Indication: PRODUCT USED FOR UNKNOWN INDICATION
  4. DIPROSONE [Suspect]
     Indication: PRODUCT USED FOR UNKNOWN INDICATION
     Route: 003

REACTIONS (1)
  - ERYSIPELAS [None]
